FAERS Safety Report 4392339-3 (Version None)
Quarter: 2004Q3

REPORT INFORMATION
  Report Type: 
  Country: None (occurrence: None)
  Receive Date: 20040702
  Receipt Date: 20040526
  Transmission Date: 20050211
  Serious: Yes (Other)
  Sender: FDA-Public Use
  Company Number: 2004UW04001

PATIENT
  Age: 78 Year
  Sex: Female
  Weight: 77.5651 kg

DRUGS (11)
  1. CRESTOR [Suspect]
     Indication: HYPERLIPIDAEMIA
     Dosage: 10 MG DAILY PO
     Route: 048
  2. TRICOR [Suspect]
     Dosage: 160 MG PO
     Route: 048
     Dates: start: 20040210, end: 20040227
  3. TRICOR [Suspect]
  4. LISINOPRIL [Concomitant]
  5. ZEBETA [Concomitant]
  6. ALLOPURINOL [Concomitant]
  7. LANOXIN [Concomitant]
  8. GLUCOTROL [Concomitant]
  9. ASPIRIN [Concomitant]
  10. ZOLOFT [Concomitant]
  11. BEXTRA [Concomitant]

REACTIONS (1)
  - ALOPECIA [None]
